FAERS Safety Report 14602081 (Version 1)
Quarter: 2018Q1

REPORT INFORMATION
  Report Type: Report from Study
  Country: None (occurrence: BR)
  Receive Date: 20180306
  Receipt Date: 20180306
  Transmission Date: 20180509
  Serious: Yes (Hospitalization, Other)
  Sender: FDA-Public Use
  Company Number: BR-ABBVIE-18K-020-2271288-00

PATIENT
  Age: 67 Year
  Sex: Female
  Weight: 64 kg

DRUGS (5)
  1. AMOXICILLIN. [Suspect]
     Active Substance: AMOXICILLIN
     Indication: PRODUCT USED FOR UNKNOWN INDICATION
     Route: 065
  2. HUMIRA [Suspect]
     Active Substance: ADALIMUMAB
     Route: 058
     Dates: end: 20171222
  3. BUSONID [Concomitant]
     Active Substance: BUDESONIDE
     Indication: CERUMEN REMOVAL
  4. HUMIRA [Suspect]
     Active Substance: ADALIMUMAB
     Indication: RHEUMATOID ARTHRITIS
     Route: 058
     Dates: start: 20091101
  5. METHOTREXATE. [Concomitant]
     Active Substance: METHOTREXATE
     Indication: PRODUCT USED FOR UNKNOWN INDICATION

REACTIONS (10)
  - Peripheral swelling [Recovered/Resolved]
  - Bacterial infection [Unknown]
  - Ear infection [Recovering/Resolving]
  - Heart valve incompetence [Not Recovered/Not Resolved]
  - Immunodeficiency [Unknown]
  - Ear infection [Recovered/Resolved]
  - Tinnitus [Recovering/Resolving]
  - Nasal septum perforation [Not Recovered/Not Resolved]
  - Drug hypersensitivity [Recovered/Resolved]
  - Middle ear effusion [Recovering/Resolving]

NARRATIVE: CASE EVENT DATE: 201709
